FAERS Safety Report 17300818 (Version 1)
Quarter: 2020Q1

REPORT INFORMATION
  Report Type: Spontaneous
  Country: JP (occurrence: JP)
  Receive Date: 20200122
  Receipt Date: 20200122
  Transmission Date: 20200409
  Serious: Yes (Death, Other)
  Sender: FDA-Public Use
  Company Number: JP-PFIZER INC-2020030878

PATIENT

DRUGS (1)
  1. LORBRENA [Suspect]
     Active Substance: LORLATINIB
     Dosage: 100 MG, DAILY
     Route: 048

REACTIONS (4)
  - Cardiac failure [Fatal]
  - Fall [Unknown]
  - Femur fracture [Unknown]
  - Dizziness [Unknown]
